FAERS Safety Report 4869620-4 (Version None)
Quarter: 2005Q4

REPORT INFORMATION
  Report Type: 
  Country: None (occurrence: None)
  Receive Date: 20051227
  Receipt Date: 20051220
  Transmission Date: 20060501
  Serious: Yes (Hospitalization)
  Sender: FDA-Public Use
  Company Number: L05-POL-05633-01

PATIENT
  Age: 7 Year

DRUGS (1)
  1. CARBAMAZEPINE [Suspect]

REACTIONS (1)
  - DRUG TOXICITY [None]
